FAERS Safety Report 6170315-8 (Version None)
Quarter: 2009Q2

REPORT INFORMATION
  Report Type: 
  Country: None (occurrence: None)
  Receive Date: 20090428
  Receipt Date: 20090417
  Transmission Date: 20091009
  Serious: Yes (Hospitalization)
  Sender: FDA-Public Use
  Company Number: KR-PFIZER INC-2009190592

PATIENT

DRUGS (6)
  1. SUNITINIB MALATE [Suspect]
     Indication: HEPATIC NEOPLASM MALIGNANT
     Dosage: 37.5 MG, 1X/DAY
     Route: 048
     Dates: start: 20081007
  2. VITAMIN B COMPLEX CAP [Concomitant]
     Indication: VITAMIN SUPPLEMENTATION
     Dosage: UNK
     Dates: start: 20080514
  3. SILYMARIN [Concomitant]
     Indication: HEPATIC CIRRHOSIS
     Dosage: UNK
     Dates: start: 20080514
  4. URSODEOXYCHOLIC ACID [Concomitant]
     Indication: CHOLELITHIASIS
     Dosage: UNK
     Dates: start: 20080514
  5. DEXTROSE [Concomitant]
     Dosage: 1000 ML/10% AND 100 ML/50%
     Dates: start: 20090310, end: 20090310
  6. LOPERAMIDE [Concomitant]
     Indication: DIARRHOEA
     Dosage: UNK
     Dates: start: 20090312

REACTIONS (1)
  - ASCITES [None]
